FAERS Safety Report 18361239 (Version 4)
Quarter: 2021Q4

REPORT INFORMATION
  Report Type: Report from Study
  Country: US (occurrence: US)
  Receive Date: 20201008
  Receipt Date: 20211217
  Transmission Date: 20220303
  Serious: Yes (Hospitalization, Other)
  Sender: FDA-Public Use
  Company Number: US-SHIRE-US202031947

PATIENT
  Age: 50 Year
  Sex: Female
  Weight: 54.422 kg

DRUGS (35)
  1. HUMAN IMMUNOGLOBULIN G [Suspect]
     Active Substance: HUMAN IMMUNOGLOBULIN G
     Indication: Immunodeficiency common variable
     Dosage: 20 GRAM, Q4WEEKS
     Route: 042
     Dates: start: 20190531
  2. HUMAN IMMUNOGLOBULIN G [Suspect]
     Active Substance: HUMAN IMMUNOGLOBULIN G
     Dosage: 20 GRAM, Q4WEEKS
     Route: 042
     Dates: start: 20190925
  3. LUMIGAN [Concomitant]
     Active Substance: BIMATOPROST
     Indication: Product used for unknown indication
  4. ATORVASTATIN [Concomitant]
     Active Substance: ATORVASTATIN
     Indication: Product used for unknown indication
  5. SULFAMETHOXAZOLE AND TRIMETHOPRIM [Concomitant]
     Active Substance: SULFAMETHOXAZOLE\TRIMETHOPRIM
     Indication: Product used for unknown indication
  6. ACETAMINOPHEN [Concomitant]
     Active Substance: ACETAMINOPHEN
     Indication: Product used for unknown indication
  7. DIPHENHYDRAMINE [Concomitant]
     Active Substance: DIPHENHYDRAMINE
     Indication: Product used for unknown indication
  8. HEPARIN [Concomitant]
     Active Substance: HEPARIN SODIUM
     Indication: Product used for unknown indication
  9. EPINEPHRINE [Concomitant]
     Active Substance: EPINEPHRINE
     Indication: Product used for unknown indication
  10. LMX4 [Concomitant]
     Active Substance: LIDOCAINE
     Indication: Product used for unknown indication
  11. PSEUDOEPHEDRINE [Concomitant]
     Active Substance: PSEUDOEPHEDRINE
     Indication: Product used for unknown indication
  12. CHLORPHENIRAMINE MALEATE [Concomitant]
     Active Substance: CHLORPHENIRAMINE MALEATE
     Indication: Product used for unknown indication
  13. DIAZEPAM [Concomitant]
     Active Substance: DIAZEPAM
     Indication: Product used for unknown indication
  14. PREDNISONE [Concomitant]
     Active Substance: PREDNISONE
     Indication: Product used for unknown indication
  15. IPRATROPIUM BROMIDE AND ALBUTEROL SULFATE [Concomitant]
     Active Substance: ALBUTEROL SULFATE\IPRATROPIUM BROMIDE
     Indication: Product used for unknown indication
  16. FORTEO [Concomitant]
     Active Substance: TERIPARATIDE
     Indication: Product used for unknown indication
  17. XYLOMETAZOLINE HYDROCHLORIDE [Concomitant]
     Active Substance: XYLOMETAZOLINE HYDROCHLORIDE
     Indication: Product used for unknown indication
  18. VITAMIN D3 [Concomitant]
     Active Substance: CHOLECALCIFEROL
     Indication: Product used for unknown indication
  19. BC [ACETYLSALICYLIC ACID;CAFFEINE] [Concomitant]
     Indication: Product used for unknown indication
  20. SODIUM CHLORIDE [Concomitant]
     Active Substance: SODIUM CHLORIDE
  21. COLESTIPOL [Concomitant]
     Active Substance: COLESTIPOL
  22. FERROUS SULFATE [Concomitant]
     Active Substance: FERROUS SULFATE
  23. POTASSIUM [Concomitant]
     Active Substance: POTASSIUM
  24. ALBUTEROL\IPRATROPIUM [Concomitant]
     Active Substance: ALBUTEROL\IPRATROPIUM
  25. OMEPRAZOLE [Concomitant]
     Active Substance: OMEPRAZOLE
  26. CHLORTHALIDONE [Concomitant]
     Active Substance: CHLORTHALIDONE
  27. FASENRA [Concomitant]
     Active Substance: BENRALIZUMAB
  28. SYMBICORT [Concomitant]
     Active Substance: BUDESONIDE\FORMOTEROL FUMARATE DIHYDRATE
  29. SODIUM CHLORIDE [Concomitant]
     Active Substance: SODIUM CHLORIDE
  30. CRESTOR [Concomitant]
     Active Substance: ROSUVASTATIN CALCIUM
  31. PROMETHAZINE [Concomitant]
     Active Substance: PROMETHAZINE HYDROCHLORIDE
  32. FENTANYL [Concomitant]
     Active Substance: FENTANYL
  33. ALBUTEROL SULFATE [Concomitant]
     Active Substance: ALBUTEROL SULFATE
     Route: 065
  34. EPINEPHRINE [Concomitant]
     Active Substance: EPINEPHRINE
     Route: 065
  35. Lmx [Concomitant]
     Route: 065

REACTIONS (6)
  - Thoracic vertebral fracture [Unknown]
  - Glaucoma [Unknown]
  - Back pain [Unknown]
  - Headache [Unknown]
  - Infusion related reaction [Unknown]
  - Cholelithiasis [Unknown]

NARRATIVE: CASE EVENT DATE: 20200908
